FAERS Safety Report 17958519 (Version 1)
Quarter: 2020Q2

REPORT INFORMATION
  Report Type: Spontaneous
  Country: DE (occurrence: DE)
  Receive Date: 20200629
  Receipt Date: 20200629
  Transmission Date: 20200714
  Serious: Yes (Hospitalization, Other)
  Sender: FDA-Public Use
  Company Number: PHHY2019DE002482

PATIENT
  Age: 34 Year
  Sex: Male

DRUGS (17)
  1. QUETIAPINE FUMARATE. [Interacting]
     Active Substance: QUETIAPINE FUMARATE
     Dosage: 50 MG, QD, 50 MG/DAY FOR 3 DAYS
     Route: 048
     Dates: start: 20150529, end: 20150531
  2. ZUCLOPENTHIXOL [Interacting]
     Active Substance: ZUCLOPENTHIXOL
     Indication: SUBSTANCE DEPENDENCE
     Dosage: 100 MILLIGRAM DAILY; 100 MG/DAY FOR 2 DAYS
     Route: 048
     Dates: start: 20150604, end: 20150605
  3. METHADONE [Concomitant]
     Active Substance: METHADONE HYDROCHLORIDE
     Indication: SUBSTANCE DEPENDENCE
     Dosage: DAILY DOSE 4 ML
     Route: 048
     Dates: start: 2014
  4. QUETIAPINE FUMARATE. [Suspect]
     Active Substance: QUETIAPINE FUMARATE
     Indication: SUBSTANCE DEPENDENCE
     Dosage: 100 MILLIGRAM DAILY; 100 MG/DAY FOR 5 DAYS
     Route: 048
     Dates: start: 20150601, end: 20150605
  5. OXYCONTIN [Concomitant]
     Active Substance: OXYCODONE HYDROCHLORIDE
     Indication: PRODUCT USED FOR UNKNOWN INDICATION
     Dosage: 15 MG, QD
     Route: 065
  6. QUETIAPINE FUMARATE. [Interacting]
     Active Substance: QUETIAPINE FUMARATE
     Dosage: 200 UNK(200 MILLIGRAM DAILY; 200 MG/DAY FOR 3 DAYS)
     Route: 065
  7. OXAZEPAM. [Concomitant]
     Active Substance: OXAZEPAM
     Indication: SUBSTANCE DEPENDENCE
     Dosage: 20-2.5 MG, QD
     Route: 065
  8. OXAZEPAM. [Concomitant]
     Active Substance: OXAZEPAM
     Dosage: DAILY DOSE 20 MG
     Route: 048
     Dates: start: 20150529, end: 20150601
  9. OXAZEPAM. [Concomitant]
     Active Substance: OXAZEPAM
     Dosage: DAILY DOSE 5 MG
     Route: 048
     Dates: start: 20150604
  10. OXAZEPAM. [Concomitant]
     Active Substance: OXAZEPAM
     Dosage: 10 MG, QD
     Route: 048
     Dates: start: 20150602, end: 20150603
  11. GABAPENTIN. [Concomitant]
     Active Substance: GABAPENTIN
     Indication: PRODUCT USED FOR UNKNOWN INDICATION
     Dosage: DAILY DOSE 600 MG
     Route: 048
     Dates: start: 2014
  12. MIRTAZAPINE. [Concomitant]
     Active Substance: MIRTAZAPINE
     Indication: PRODUCT USED FOR UNKNOWN INDICATION
     Dosage: 7.5 MG, QD
     Route: 048
     Dates: start: 20150528, end: 20150605
  13. EXFORGE [Concomitant]
     Active Substance: AMLODIPINE BESYLATE\VALSARTAN
     Indication: PRODUCT USED FOR UNKNOWN INDICATION
     Dosage: 10/160 MG/DAY
     Route: 065
  14. VALPROATE [Concomitant]
     Active Substance: VALPROIC ACID
     Indication: PRODUCT USED FOR UNKNOWN INDICATION
     Dosage: 1000 MG, QD
     Route: 048
     Dates: start: 2014
  15. OXAZEPAM. [Concomitant]
     Active Substance: OXAZEPAM
     Dosage: 2.5 MG, QD
     Route: 048
     Dates: start: 20150605
  16. VENLAFAXINE [Concomitant]
     Active Substance: VENLAFAXINE HYDROCHLORIDE
     Indication: DEPRESSION
     Dosage: 75-300 MG/ DAY
     Route: 065
  17. PANTOPRAZOL [Concomitant]
     Active Substance: PANTOPRAZOLE SODIUM
     Indication: PRODUCT USED FOR UNKNOWN INDICATION
     Dosage: 40 MILLIGRAM DAILY;
     Route: 065

REACTIONS (2)
  - Drug interaction [Unknown]
  - Priapism [Recovered/Resolved]

NARRATIVE: CASE EVENT DATE: 20150605
